FAERS Safety Report 5738155-9 (Version None)
Quarter: 2008Q2

REPORT INFORMATION
  Report Type: 
  Country: None (occurrence: None)
  Receive Date: 20080514
  Receipt Date: 20080506
  Transmission Date: 20081010
  Serious: Yes (Hospitalization)
  Sender: FDA-Public Use
  Company Number: US-PFIZER INC-2008039486

PATIENT
  Sex: Female

DRUGS (2)
  1. CHANTIX [Suspect]
     Indication: SMOKING CESSATION THERAPY
  2. DRUG, UNSPECIFIED [Concomitant]

REACTIONS (3)
  - JOINT SWELLING [None]
  - MEDICATION ERROR [None]
  - OEDEMA PERIPHERAL [None]
